FAERS Safety Report 11871763 (Version 3)
Quarter: 2016Q2

REPORT INFORMATION
  Report Type: Report from Study
  Country: US (occurrence: US)
  Receive Date: 20151228
  Receipt Date: 20160623
  Transmission Date: 20160815
  Serious: Yes (Hospitalization)
  Sender: FDA-Public Use
  Company Number: US-VERTEX PHARMACEUTICALS-2015-005958

PATIENT
  Age: 40 Year
  Sex: Male

DRUGS (3)
  1. ORKAMBI [Interacting]
     Active Substance: IVACAFTOR\LUMACAFTOR
     Dosage: STANDARD
     Route: 048
  2. ORKAMBI [Suspect]
     Active Substance: IVACAFTOR\LUMACAFTOR
     Indication: CYSTIC FIBROSIS
     Dosage: STANDARD
     Route: 048
     Dates: start: 20150930, end: 201511
  3. PROTON PUMP INHIBITORS [Interacting]
     Active Substance: UNSPECIFIED INGREDIENT
     Indication: GASTROINTESTINAL HAEMORRHAGE
     Dosage: INCREASED DOSE
     Route: 065

REACTIONS (3)
  - Gastrointestinal pain [Unknown]
  - Gastrointestinal haemorrhage [Recovered/Resolved]
  - Drug interaction [Unknown]

NARRATIVE: CASE EVENT DATE: 201512
